FAERS Safety Report 24454102 (Version 2)
Quarter: 2024Q4

REPORT INFORMATION
  Report Type: Spontaneous
  Country: US (occurrence: US)
  Receive Date: 20241017
  Receipt Date: 20241018
  Transmission Date: 20250114
  Serious: No
  Sender: ROCHE
  Company Number: US-ROCHE-3466838

PATIENT
  Sex: Female

DRUGS (5)
  1. RITUXAN [Suspect]
     Active Substance: RITUXIMAB
     Indication: Idiopathic orbital inflammation
     Route: 065
     Dates: start: 20230725
  2. PREDNISONE [Concomitant]
     Active Substance: PREDNISONE
  3. LYRICA [Concomitant]
     Active Substance: PREGABALIN
  4. TRAMADOL [Concomitant]
     Active Substance: TRAMADOL
  5. TORADOL [Concomitant]
     Active Substance: KETOROLAC TROMETHAMINE

REACTIONS (5)
  - Neuralgia [Unknown]
  - Arthralgia [Unknown]
  - Fatigue [Unknown]
  - Impaired driving ability [Unknown]
  - Off label use [Unknown]
